FAERS Safety Report 5381564-0 (Version None)
Quarter: 2007Q2

REPORT INFORMATION
  Report Type: 
  Country: None (occurrence: None)
  Receive Date: 20070629
  Receipt Date: 20070423
  Transmission Date: 20071010
  Serious: Yes (Hospitalization)
  Sender: FDA-Public Use
  Company Number: A03200702701

PATIENT
  Age: 56 Year
  Sex: Female

DRUGS (1)
  1. AMBIEN [Suspect]
     Indication: INSOMNIA
     Dosage: 12.5 MG ONCE-ORAL
     Route: 048
     Dates: start: 20070301, end: 20070301

REACTIONS (1)
  - HEADACHE [None]
